FAERS Safety Report 23312407 (Version 2)
Quarter: 2024Q2

REPORT INFORMATION
  Report Type: Report from Study
  Country: JP (occurrence: JP)
  Receive Date: 20231219
  Receipt Date: 20240404
  Transmission Date: 20240716
  Serious: Yes (Hospitalization)
  Sender: FDA-Public Use
  Company Number: JP-JNJFOC-20201242969

PATIENT
  Age: 34 Year
  Sex: Male

DRUGS (6)
  1. EMTRICITABINE\RILPIVIRINE HYDROCHLORIDE\TENOFOVIR ALAFENAMIDE FUMARATE [Suspect]
     Active Substance: EMTRICITABINE\RILPIVIRINE HYDROCHLORIDE\TENOFOVIR ALAFENAMIDE FUMARATE
     Indication: HIV infection
     Dosage: 1 DOSAGE FORM, QD
     Route: 048
     Dates: start: 20181107
  2. ZEBIAX [OZENOXACIN] [Concomitant]
     Indication: Acne
     Dosage: DOSE UNKNOWN
     Route: 061
     Dates: start: 20180604, end: 20220611
  3. LAMISIL [Concomitant]
     Active Substance: TERBINAFINE HYDROCHLORIDE
     Indication: Dermatophytosis of nail
     Dosage: DOSE UNKNOWN
     Route: 048
     Dates: start: 20180817, end: 201905
  4. EPIDUO [Concomitant]
     Active Substance: ADAPALENE\BENZOYL PEROXIDE
     Indication: Acne
     Dosage: DOSE UNKNOWN
     Route: 061
     Dates: start: 20190809, end: 20220611
  5. HEPARINOID [Concomitant]
     Indication: Product used for unknown indication
     Dosage: DOSE UNKNOWN
     Route: 061
     Dates: start: 20220326
  6. HEPARINOID [Concomitant]
     Dosage: DOSE UNKNOWN
     Route: 065
     Dates: start: 20220326

REACTIONS (6)
  - Pectus excavatum [Recovering/Resolving]
  - Conjunctivitis [Recovering/Resolving]
  - Dry eye [Recovering/Resolving]
  - Palmoplantar keratoderma [Recovering/Resolving]
  - Stomatitis [Recovering/Resolving]
  - Insomnia [Not Recovered/Not Resolved]

NARRATIVE: CASE EVENT DATE: 20200928
